FAERS Safety Report 8855035 (Version 1)
Quarter: 2012Q4

REPORT INFORMATION
  Report Type: 
  Country: US (occurrence: US)
  Receive Date: 20121023
  Receipt Date: 20121023
  Transmission Date: 20130627
  Serious: No
  Sender: FDA-Public Use
  Company Number: US-B.I. PHARMACEUTICALS,INC./RIDGEFIELD-2012-BP-25321BP

PATIENT
  Age: 16 Year
  Sex: Female
  Weight: 70 kg

DRUGS (2)
  1. ZANTAC 150 (RANITIDINE HYDROCHLORIDE) [Suspect]
     Indication: DYSPEPSIA
     Dosage: 600 mg
     Route: 048
     Dates: start: 20121010, end: 20121010
  2. ZANTAC 150 (RANITIDINE HYDROCHLORIDE) [Suspect]
     Indication: DYSPEPSIA
     Route: 048

REACTIONS (2)
  - Drug ineffective [Unknown]
  - Intentional drug misuse [Unknown]
